FAERS Safety Report 21369004 (Version 1)
Quarter: 2022Q3

REPORT INFORMATION
  Report Type: Spontaneous
  Country: FR (occurrence: FR)
  Receive Date: 20220923
  Receipt Date: 20220923
  Transmission Date: 20221027
  Serious: Yes (Life-Threatening, Hospitalization)
  Sender: FDA-Public Use
  Company Number: FR-AFSSAPS-AN20221971

PATIENT
  Age: 72 Year
  Sex: Female
  Weight: 68 kg

DRUGS (6)
  1. IBUPROFEN [Suspect]
     Active Substance: IBUPROFEN
     Indication: Pain
     Dosage: UNK
     Route: 048
     Dates: start: 20220801, end: 20220810
  2. LOPERAMIDE [Suspect]
     Active Substance: LOPERAMIDE
     Indication: Diarrhoea
     Dosage: 2 MILLIGRAM, UNK
     Route: 048
     Dates: start: 20220622, end: 20220629
  3. PAROXETINE [Suspect]
     Active Substance: PAROXETINE
     Indication: Depression
     Dosage: 1 DOSAGE FORM, DAILY
     Route: 048
     Dates: start: 20220614, end: 20220812
  4. METHOTREXATE [Suspect]
     Active Substance: METHOTREXATE
     Indication: Crohn^s disease
     Dosage: 15 MILLIGRAM, WEEKLY
     Route: 048
     Dates: start: 20211126, end: 202208
  5. METEOSPASMYL (ALVERINE CITRATE\DIMETHICONE) [Suspect]
     Active Substance: ALVERINE CITRATE\DIMETHICONE
     Indication: Abdominal pain
     Dosage: 1 DOSAGE FORM, DAILY
     Route: 048
     Dates: start: 20220614, end: 20220812
  6. INFLIXIMAB [Suspect]
     Active Substance: INFLIXIMAB
     Indication: Crohn^s disease
     Dosage: 700 MILLIGRAM, MONTHLY
     Route: 040
     Dates: start: 20211126, end: 20220519

REACTIONS (2)
  - Febrile bone marrow aplasia [Recovered/Resolved]
  - Toxic epidermal necrolysis [Recovered/Resolved]

NARRATIVE: CASE EVENT DATE: 20220812
